FAERS Safety Report 10249029 (Version 1)
Quarter: 2014Q2

REPORT INFORMATION
  Report Type: Report from Study
  Country: US (occurrence: US)
  Receive Date: 20140620
  Receipt Date: 20140620
  Transmission Date: 20141212
  Serious: Yes (Other)
  Sender: FDA-Public Use
  Company Number: PHEH2014US012331

PATIENT
  Age: 92 Year
  Sex: Female

DRUGS (1)
  1. GLEEVEC [Suspect]
     Dosage: UNK UKN, UNK

REACTIONS (2)
  - Hip fracture [Unknown]
  - Gait disturbance [Unknown]
